FAERS Safety Report 8378508-6 (Version None)
Quarter: 2012Q2

REPORT INFORMATION
  Report Type: 
  Country: None (occurrence: None)
  Receive Date: 20120522
  Receipt Date: 20120515
  Transmission Date: 20120825
  Serious: Yes (Other)
  Sender: FDA-Public Use
  Company Number: FR-ABBOTT-12P-056-0935982-00

PATIENT
  Age: 66 Year
  Sex: Female

DRUGS (3)
  1. DEPAKOTE [Suspect]
     Indication: PRODUCT USED FOR UNKNOWN INDICATION
     Route: 048
     Dates: start: 20120224, end: 20120301
  2. DEPAKOTE [Suspect]
     Route: 048
     Dates: start: 20120302, end: 20120309
  3. PAROXETINE HYDROCHLORIDE [Concomitant]
     Indication: PRODUCT USED FOR UNKNOWN INDICATION
     Dates: start: 20120214

REACTIONS (2)
  - CHOLESTASIS [None]
  - PANCREATIC ENZYMES INCREASED [None]
